FAERS Safety Report 7402432-6 (Version None)
Quarter: 2011Q2

REPORT INFORMATION
  Report Type: 
  Country: None (occurrence: None)
  Receive Date: 20110408
  Receipt Date: 20110330
  Transmission Date: 20111010
  Serious: Yes (Death)
  Sender: FDA-Public Use
  Company Number: PHHY2011JP17449

PATIENT
  Sex: Male

DRUGS (1)
  1. GLEEVEC [Suspect]
     Indication: CHRONIC MYELOID LEUKAEMIA
     Route: 048
     Dates: start: 20101001, end: 20110101

REACTIONS (5)
  - RESPIRATORY FAILURE [None]
  - BLAST CRISIS IN MYELOGENOUS LEUKAEMIA [None]
  - PNEUMONIA [None]
  - LYMPHOMA [None]
  - NEOPLASM MALIGNANT [None]
